FAERS Safety Report 24203710 (Version 2)
Quarter: 2024Q3

REPORT INFORMATION
  Report Type: Report from Study
  Country: CA (occurrence: CA)
  Receive Date: 20240813
  Receipt Date: 20240814
  Transmission Date: 20241017
  Serious: Yes (Hospitalization)
  Sender: ABBVIE
  Company Number: CA-ABBVIE-5875009

PATIENT
  Age: 56 Year
  Sex: Male

DRUGS (4)
  1. VENCLEXTA [Suspect]
     Active Substance: VENETOCLAX
     Indication: Myelodysplastic syndrome
     Dosage: ONCE?FORM STRENGTH: 100 MILLIGRAM
     Route: 048
     Dates: start: 20240711, end: 20240711
  2. VENCLEXTA [Suspect]
     Active Substance: VENETOCLAX
     Indication: Myelodysplastic syndrome
     Dosage: ONCE?FORM STRENGTH: 100 MILLIGRAM
     Route: 048
     Dates: start: 20240712, end: 20240712
  3. VENCLEXTA [Suspect]
     Active Substance: VENETOCLAX
     Indication: Myelodysplastic syndrome
     Dosage: FORM STRENGTH: 100 MILLIGRAM
     Route: 048
     Dates: start: 20240713, end: 20240808
  4. AZACITIDINE [Concomitant]
     Active Substance: AZACITIDINE
     Indication: Product used for unknown indication

REACTIONS (3)
  - Transfusion [Unknown]
  - Viral infection [Unknown]
  - Off label use [Unknown]

NARRATIVE: CASE EVENT DATE: 20240101
